FAERS Safety Report 20883718 (Version 1)
Quarter: 2022Q2

REPORT INFORMATION
  Report Type: Report from Study
  Country: TW (occurrence: None)
  Receive Date: 20220527
  Receipt Date: 20220527
  Transmission Date: 20220721
  Serious: Yes (Hospitalization)
  Sender: FDA-Public Use
  Company Number: TW-ROCHE-3082541

PATIENT
  Age: 48 Year
  Sex: Male

DRUGS (23)
  1. ATEZOLIZUMAB [Suspect]
     Active Substance: ATEZOLIZUMAB
     Indication: Hepatocellular carcinoma
     Route: 042
     Dates: start: 20211110, end: 20220323
  2. BEVACIZUMAB [Suspect]
     Active Substance: BEVACIZUMAB
     Indication: Hepatocellular carcinoma
     Route: 042
     Dates: start: 20211110, end: 20220323
  3. XANAX [Concomitant]
     Active Substance: ALPRAZOLAM
     Route: 048
     Dates: start: 20220320
  4. BARACLUDE [Concomitant]
     Active Substance: ENTECAVIR
     Indication: Chronic hepatitis B
     Route: 048
     Dates: start: 20211101
  5. NEXIUM [Concomitant]
     Active Substance: ESOMEPRAZOLE MAGNESIUM
     Route: 048
     Dates: start: 20211104, end: 20220322
  6. NEXIUM [Concomitant]
     Active Substance: ESOMEPRAZOLE MAGNESIUM
     Route: 048
     Dates: start: 20220413
  7. OPIODUR [Concomitant]
     Dosage: 12.5 MCG/HR
     Route: 062
     Dates: start: 20211107
  8. METFORMIN HYDROCHLORIDE [Concomitant]
     Active Substance: METFORMIN HYDROCHLORIDE
     Route: 048
     Dates: start: 20211222
  9. MOPRIDE (TAIWAN) [Concomitant]
     Route: 048
     Dates: start: 20220302
  10. OXYCONTIN [Concomitant]
     Active Substance: OXYCODONE HYDROCHLORIDE
     Route: 048
     Dates: start: 20211104
  11. QTERN [Concomitant]
     Active Substance: DAPAGLIFLOZIN\SAXAGLIPTIN HYDROCHLORIDE
     Dosage: SAXAGLIPTIN 5 MG/ DAPAGLIFLOZIN 10 MG
     Route: 048
     Dates: start: 20211222
  12. TERLIPRESSIN [Concomitant]
     Active Substance: TERLIPRESSIN
     Route: 042
     Dates: start: 20220419
  13. TRANSAMIN [Concomitant]
     Active Substance: TRANEXAMIC ACID
     Route: 041
     Dates: start: 20220508, end: 20220509
  14. BUTYLSCOPOLAMINE BROMIDE [Concomitant]
     Active Substance: BUTYLSCOPOLAMINE BROMIDE
     Route: 030
     Dates: start: 20220508, end: 20220508
  15. ACETAMINOPHEN [Concomitant]
     Active Substance: ACETAMINOPHEN
     Dates: start: 20220508, end: 20220508
  16. ACETAMINOPHEN [Concomitant]
     Active Substance: ACETAMINOPHEN
     Dates: start: 20220508, end: 20220515
  17. CEFEPIME [Concomitant]
     Active Substance: CEFEPIME HYDROCHLORIDE
     Dates: start: 20220508, end: 20220508
  18. CEFEPIME [Concomitant]
     Active Substance: CEFEPIME HYDROCHLORIDE
     Dates: start: 20220508, end: 20220512
  19. INSULIN NOS [Concomitant]
     Active Substance: INSULIN NOS
     Dosage: 16 UNIT NOT REPORTED
     Route: 042
  20. SCRAT [Concomitant]
     Dosage: 1 G/10 ML
     Route: 048
     Dates: start: 20220509
  21. PROPRANOLOL [Concomitant]
     Active Substance: PROPRANOLOL HYDROCHLORIDE
     Route: 048
     Dates: start: 20220427
  22. ALDACTONE [Concomitant]
     Active Substance: SPIRONOLACTONE
     Route: 048
     Dates: start: 20220427
  23. ZOLPIDEM TARTRATE [Concomitant]
     Active Substance: ZOLPIDEM TARTRATE
     Route: 048
     Dates: start: 20220427

REACTIONS (2)
  - Oesophageal varices haemorrhage [Recovered/Resolved]
  - Oesophageal ulcer [Recovered/Resolved]

NARRATIVE: CASE EVENT DATE: 20220419
